FAERS Safety Report 21558588 (Version 1)
Quarter: 2022Q4

REPORT INFORMATION
  Report Type: Report from Study
  Country: US (occurrence: US)
  Receive Date: 20221107
  Receipt Date: 20221107
  Transmission Date: 20230113
  Serious: Yes (Hospitalization, Other)
  Sender: FDA-Public Use
  Company Number: US-BEH-2022151547

PATIENT
  Age: 47 Year
  Sex: Female
  Weight: 88.435 kg

DRUGS (2)
  1. HAEGARDA [Suspect]
     Active Substance: HUMAN C1-ESTERASE INHIBITOR
     Indication: Hereditary angioedema
     Dosage: UNK, QOD
     Route: 058
     Dates: start: 20210415
  2. HAEGARDA [Suspect]
     Active Substance: HUMAN C1-ESTERASE INHIBITOR
     Indication: Prophylaxis
     Dosage: UNK
     Route: 065
     Dates: start: 20221024

REACTIONS (4)
  - Hereditary angioedema [Unknown]
  - Cardiac operation [Unknown]
  - No adverse event [Unknown]
  - Product distribution issue [Unknown]
